FAERS Safety Report 14177066 (Version 1)
Quarter: 2017Q4

REPORT INFORMATION
  Report Type: Spontaneous
  Country: CH (occurrence: CH)
  Receive Date: 20171110
  Receipt Date: 20171110
  Transmission Date: 20180321
  Serious: Yes (Death, Hospitalization)
  Sender: FDA-Public Use
  Company Number: CH-ROCHE-2017837

PATIENT
  Age: 58 Year
  Sex: Male

DRUGS (17)
  1. VANCOMYCIN [Concomitant]
     Active Substance: VANCOMYCIN
  2. FLUCONAZOLE. [Concomitant]
     Active Substance: FLUCONAZOLE
  3. ACYCLOVIR. [Concomitant]
     Active Substance: ACYCLOVIR
  4. SULFAMETHOXAZOLE/TRIMETHOPRIM [Concomitant]
     Active Substance: SULFAMETHOXAZOLE\TRIMETHOPRIM
     Route: 065
  5. MOXIFLOXACIN. [Concomitant]
     Active Substance: MOXIFLOXACIN
  6. METHYLPREDNISOLONE. [Concomitant]
     Active Substance: METHYLPREDNISOLONE
  7. ACTEMRA [Suspect]
     Active Substance: TOCILIZUMAB
     Indication: CYTOKINE RELEASE SYNDROME
     Dosage: DOSAGE IS UNCERTAIN.
     Route: 042
     Dates: start: 20160704
  8. GEMCITABINE [Concomitant]
     Active Substance: GEMCITABINE\GEMCITABINE HYDROCHLORIDE
  9. PREDNISOLONE. [Concomitant]
     Active Substance: PREDNISOLONE
  10. CEFEPIME [Concomitant]
     Active Substance: CEFEPIME HYDROCHLORIDE
  11. PIPERACILLIN TAZOBACTAM KABI [Concomitant]
     Active Substance: PIPERACILLIN SODIUM\TAZOBACTAM SODIUM
  12. POSACONAZOLE [Concomitant]
     Active Substance: POSACONAZOLE
  13. RITUXIMAB. [Concomitant]
     Active Substance: RITUXIMAB
     Route: 065
  14. CIPROFLOXACIN. [Concomitant]
     Active Substance: CIPROFLOXACIN
  15. TISAGENLECLEUCEL. [Suspect]
     Active Substance: TISAGENLECLEUCEL
     Indication: DIFFUSE LARGE B-CELL LYMPHOMA
     Dosage: DOSAGE IS UNCERTAIN.
     Route: 041
     Dates: start: 20160627
  16. OXALIPLATIN. [Concomitant]
     Active Substance: OXALIPLATIN
  17. ALLOPURINOL. [Concomitant]
     Active Substance: ALLOPURINOL
     Route: 065

REACTIONS (5)
  - Pharyngeal haemorrhage [Recovered/Resolved]
  - Diffuse large B-cell lymphoma [Fatal]
  - Encephalopathy [Recovering/Resolving]
  - Platelet count decreased [Unknown]
  - Neutrophil count decreased [Not Recovered/Not Resolved]

NARRATIVE: CASE EVENT DATE: 20160708
